FAERS Safety Report 5426037-1 (Version None)
Quarter: 2007Q3

REPORT INFORMATION
  Report Type: 
  Country: None (occurrence: None)
  Receive Date: 20070824
  Receipt Date: 20070824
  Transmission Date: 20080115
  Serious: Yes (Other)
  Sender: FDA-Public Use
  Company Number: None

PATIENT
  Age: 51 Year
  Sex: Male
  Weight: 190 kg

DRUGS (3)
  1. LEVAQUIN [Suspect]
     Indication: EPIDIDYMITIS
     Dosage: ONE DAY
     Dates: start: 20070702
  2. LEVAQUIN [Suspect]
     Indication: EPIDIDYMITIS
     Dosage: ONE DAY
     Dates: start: 20070703
  3. LEVAQUIN [Suspect]
     Indication: EPIDIDYMITIS
     Dosage: ONE DAY
     Dates: start: 20070704

REACTIONS (7)
  - BACK PAIN [None]
  - GAIT DISTURBANCE [None]
  - IMPAIRED WORK ABILITY [None]
  - PAIN IN EXTREMITY [None]
  - TENDON PAIN [None]
  - TENDON RUPTURE [None]
  - WALKING AID USER [None]
